FAERS Safety Report 9941824 (Version 1)
Quarter: 2014Q1

REPORT INFORMATION
  Report Type: Report from Study
  Country: US (occurrence: US)
  Receive Date: 20140303
  Receipt Date: 20140303
  Transmission Date: 20141002
  Serious: No
  Sender: FDA-Public Use
  Company Number: US-ABBVIE-13P-163-1042997-00

PATIENT
  Age: 40 Year
  Sex: Female

DRUGS (6)
  1. HUMIRA [Suspect]
     Indication: COLITIS ULCERATIVE
     Dates: start: 20130107, end: 20130107
  2. HUMIRA [Suspect]
     Dates: start: 20130121
  3. CHOLESOL [Concomitant]
     Indication: PRODUCT USED FOR UNKNOWN INDICATION
     Dosage: #8 TABLETS DAILY
  4. ROWASA [Concomitant]
     Indication: COLITIS ULCERATIVE
     Dosage: 1 DAILY
  5. HYDROCHLOROTHIAZIDE [Concomitant]
     Indication: PRODUCT USED FOR UNKNOWN INDICATION
     Dosage: 25MG DAILY
  6. POTASSIUM CITRATE [Concomitant]
     Indication: NEPHROLITHIASIS
     Dosage: 1080MG DAILY

REACTIONS (1)
  - Nausea [Not Recovered/Not Resolved]
